FAERS Safety Report 8166532-8 (Version None)
Quarter: 2012Q1

REPORT INFORMATION
  Report Type: 
  Country: None (occurrence: None)
  Receive Date: 20120227
  Receipt Date: 20120223
  Transmission Date: 20120608
  Serious: Yes (Life-Threatening, Hospitalization)
  Sender: FDA-Public Use
  Company Number: NL-AMGEN-NLDSP2012012153

PATIENT
  Age: 50 Year
  Sex: Female

DRUGS (2)
  1. RANITIDINE [Concomitant]
     Dosage: 150 MG, QD
  2. PROLIA [Suspect]
     Indication: OSTEOPOROSIS
     Dosage: 60 MG, Q6MO
     Dates: start: 20120128, end: 20120210

REACTIONS (3)
  - TETANY [None]
  - MUSCLE SPASMS [None]
  - HYPOCALCAEMIA [None]
